FAERS Safety Report 8405159-7 (Version None)
Quarter: 2012Q2

REPORT INFORMATION
  Report Type: 
  Country: None (occurrence: None)
  Receive Date: 20120602
  Receipt Date: 20120521
  Transmission Date: 20120825
  Serious: Yes (Hospitalization)
  Sender: FDA-Public Use
  Company Number: IT-TEVA-339873ISR

PATIENT
  Sex: Male

DRUGS (4)
  1. ETOPOSIDE [Suspect]
  2. VINCRISTINE [Suspect]
  3. DOXORUBICIN HCL [Suspect]
  4. VINBLASTINA SOLFATO [Suspect]

REACTIONS (1)
  - PNEUMONITIS [None]
